FAERS Safety Report 13017161 (Version 1)
Quarter: 2016Q4

REPORT INFORMATION
  Report Type: Spontaneous
  Country: CN (occurrence: CN)
  Receive Date: 20161212
  Receipt Date: 20161212
  Transmission Date: 20170207
  Serious: Yes (Hospitalization)
  Sender: FDA-Public Use
  Company Number: CN-UNICHEM LABORATORIES LIMITED-UCM201612-000275

PATIENT
  Age: 26 Year
  Sex: Female

DRUGS (3)
  1. LAMOTRIGINE. [Concomitant]
     Active Substance: LAMOTRIGINE
     Indication: PARTIAL SEIZURES
  2. CARBAMAZEPINE. [Concomitant]
     Active Substance: CARBAMAZEPINE
  3. DIVALPROEX SODIUM. [Suspect]
     Active Substance: DIVALPROEX SODIUM
     Indication: PARTIAL SEIZURES
     Route: 048

REACTIONS (2)
  - Status epilepticus [Unknown]
  - Exposure during pregnancy [Unknown]
